FAERS Safety Report 7276862-X (Version None)
Quarter: 2011Q1

REPORT INFORMATION
  Report Type: 
  Country: None (occurrence: None)
  Receive Date: 20110207
  Receipt Date: 20110129
  Transmission Date: 20110831
  Serious: Yes (Hospitalization)
  Sender: FDA-Public Use
  Company Number: US-BIOGENIDEC-2011BI001365

PATIENT
  Age: 51 Year
  Sex: Female

DRUGS (2)
  1. SOLU-MEDROL [Concomitant]
     Indication: OPTIC NERVE INJURY
  2. AVONEX [Suspect]
     Indication: MULTIPLE SCLEROSIS
     Route: 030
     Dates: start: 20030717, end: 20110105

REACTIONS (4)
  - LUNG INFECTION [None]
  - SPINAL CORD DISORDER [None]
  - BLOOD COUNT ABNORMAL [None]
  - EAR INFECTION [None]
